FAERS Safety Report 25788292 (Version 1)
Quarter: 2025Q3

REPORT INFORMATION
  Report Type: Spontaneous
  Country: US (occurrence: US)
  Receive Date: 20250910
  Receipt Date: 20250910
  Transmission Date: 20251021
  Serious: No
  Sender: MERCK SHARP & DOHME LLC
  Company Number: US-009507513-2324072

PATIENT
  Sex: Female
  Weight: 83.461 kg

DRUGS (17)
  1. PEMBROLIZUMAB [Suspect]
     Active Substance: PEMBROLIZUMAB
     Indication: Renal cell carcinoma
  2. LENVIMA [Suspect]
     Active Substance: LENVATINIB
     Indication: Renal cell carcinoma
     Route: 048
  3. AMLODIPINE [Concomitant]
     Active Substance: AMLODIPINE BESYLATE
  4. AZELASTINE [Concomitant]
     Active Substance: AZELASTINE
  5. BIOTENE NOS [Concomitant]
     Active Substance: UNSPECIFIED INGREDIENT
  6. CLONIDINE [Concomitant]
     Active Substance: CLONIDINE
  7. CLOPIDOGREL [Concomitant]
     Active Substance: CLOPIDOGREL BISULFATE
  8. FLUTICASONE [Concomitant]
     Active Substance: FLUTICASONE
  9. insulin solostar [Concomitant]
  10. IRBESARTAN [Concomitant]
     Active Substance: IRBESARTAN
  11. ISOSORBIDE [Concomitant]
     Active Substance: ISOSORBIDE
  12. MAGNESIUM [Concomitant]
     Active Substance: MAGNESIUM
  13. MIRALAX [Concomitant]
     Active Substance: POLYETHYLENE GLYCOL 3350
  14. NITROGLYCERIN [Concomitant]
     Active Substance: NITROGLYCERIN
  15. ONDANSETRON [Concomitant]
     Active Substance: ONDANSETRON
  16. TYLENOL [Concomitant]
     Active Substance: ACETAMINOPHEN
  17. VITAMIN D3 [Concomitant]
     Active Substance: CHOLECALCIFEROL

REACTIONS (1)
  - Fatigue [Not Recovered/Not Resolved]
